FAERS Safety Report 14657070 (Version 2)
Quarter: 2018Q1

REPORT INFORMATION
  Report Type: Spontaneous
  Country: MM (occurrence: MM)
  Receive Date: 20180319
  Receipt Date: 20180321
  Transmission Date: 20180509
  Serious: Yes (Other)
  Sender: FDA-Public Use
  Company Number: MM-PFIZER INC-2018105635

PATIENT
  Age: 34 Year
  Sex: Female
  Weight: 37.01 kg

DRUGS (15)
  1. PARA-AMINOSALICYLIC ACID [Suspect]
     Active Substance: AMINOSALICYLIC ACID
     Dosage: UNK
     Dates: start: 20171222
  2. CLOFAZIMINE [Suspect]
     Active Substance: CLOFAZIMINE
     Dosage: 200 MG, DAILY (QD)
     Route: 048
     Dates: start: 20171128, end: 20171210
  3. CILASTATIN SODIUM W/IMIPENEM [Suspect]
     Active Substance: CILASTATIN SODIUM\IMIPENEM
     Dosage: 2 G, DAILY (QD)
     Route: 042
     Dates: start: 20171128, end: 20171211
  4. LINEZOLID. [Suspect]
     Active Substance: LINEZOLID
     Dosage: 600 MG, DAILY (QD)
     Route: 048
     Dates: start: 20171128, end: 20171211
  5. AMOXICILLIN AND CLAVULANATE POTASSIUM [Suspect]
     Active Substance: AMOXICILLIN\CLAVULANATE POTASSIUM
     Dosage: 1250 MG, DAILY (QD)
     Route: 048
     Dates: start: 20171128, end: 20171211
  6. AMOXICILLIN AND CLAVULANATE POTASSIUM [Suspect]
     Active Substance: AMOXICILLIN\CLAVULANATE POTASSIUM
     Dosage: UNK
     Dates: start: 20171222
  7. DELAMANID [Suspect]
     Active Substance: DELAMANID
     Dosage: 200 MG, DAILY (QD)
     Route: 048
     Dates: start: 20171128, end: 20171210
  8. INSULIN [Concomitant]
     Active Substance: INSULIN NOS
     Indication: DIABETES MELLITUS
     Dosage: UNK
     Dates: start: 20171012
  9. BEDAQUILINE [Suspect]
     Active Substance: BEDAQUILINE
     Dosage: 400 MG, DAILY (QD)
     Route: 048
     Dates: start: 20171128, end: 20171210
  10. CILASTATIN SODIUM W/IMIPENEM [Suspect]
     Active Substance: CILASTATIN SODIUM\IMIPENEM
     Dosage: UNK
     Dates: start: 20171222
  11. PARA-AMINOSALICYLIC ACID [Suspect]
     Active Substance: AMINOSALICYLIC ACID
     Dosage: 8 G, DAILY (QD)
     Route: 048
     Dates: start: 20171128, end: 20171211
  12. CLOFAZIMINE [Suspect]
     Active Substance: CLOFAZIMINE
     Dosage: UNK
     Dates: start: 20171222
  13. BEDAQUILINE [Suspect]
     Active Substance: BEDAQUILINE
     Dosage: UNK
     Dates: start: 20171222
  14. LINEZOLID. [Suspect]
     Active Substance: LINEZOLID
     Dosage: UNK
     Dates: start: 20171222
  15. DELAMANID [Suspect]
     Active Substance: DELAMANID
     Dosage: UNK
     Dates: start: 20171222

REACTIONS (2)
  - Muscle spasms [Recovered/Resolved]
  - Eye movement disorder [Recovered/Resolved]

NARRATIVE: CASE EVENT DATE: 20171209
